FAERS Safety Report 14904427 (Version 1)
Quarter: 2018Q2

REPORT INFORMATION
  Report Type: Spontaneous
  Country: US (occurrence: US)
  Receive Date: 20180517
  Receipt Date: 20180517
  Transmission Date: 20180711
  Serious: No
  Sender: FDA-Public Use
  Company Number: US-SA-2017SA164327

PATIENT

DRUGS (4)
  1. SOLOSTAR [Suspect]
     Active Substance: DEVICE
  2. LANTUS SOLOSTAR [Suspect]
     Active Substance: INSULIN GLARGINE
     Route: 051
  3. VICTOZA [Suspect]
     Active Substance: LIRAGLUTIDE
     Route: 065
  4. VICTOZA [Suspect]
     Active Substance: LIRAGLUTIDE
     Route: 065
     Dates: start: 20170806, end: 20170806

REACTIONS (2)
  - Headache [Unknown]
  - Wrong drug administered [Unknown]

NARRATIVE: CASE EVENT DATE: 20170806
